FAERS Safety Report 15773265 (Version 2)
Quarter: 2019Q1

REPORT INFORMATION
  Report Type: Spontaneous
  Country: US (occurrence: US)
  Receive Date: 20181228
  Receipt Date: 20190124
  Transmission Date: 20190417
  Serious: No
  Sender: FDA-Public Use
  Company Number: US-009507513-1812USA000770

PATIENT
  Age: 23 Year
  Sex: Female
  Weight: 116.1 kg

DRUGS (1)
  1. NEXPLANON [Suspect]
     Active Substance: ETONOGESTREL
     Indication: CONTRACEPTION
     Dosage: 1 ROD
     Route: 059
     Dates: start: 20181107, end: 20181129

REACTIONS (7)
  - Device expulsion [Recovered/Resolved]
  - Dermatitis allergic [Recovered/Resolved]
  - Skin erosion [Recovered/Resolved]
  - Granuloma skin [Recovered/Resolved]
  - Implant site pruritus [Recovered/Resolved]
  - Scab [Recovered/Resolved]
  - Skin atrophy [Recovered/Resolved]

NARRATIVE: CASE EVENT DATE: 20181110
